FAERS Safety Report 12172577 (Version 3)
Quarter: 2019Q1

REPORT INFORMATION
  Report Type: Spontaneous
  Country: FR (occurrence: FR)
  Receive Date: 20160311
  Receipt Date: 20190221
  Transmission Date: 20190417
  Serious: Yes (Hospitalization, Congenital Anomaly, Other)
  Sender: FDA-Public Use
  Company Number: FR-ABBVIE-16P-056-1578877-00

PATIENT
  Sex: Female

DRUGS (3)
  1. RIVOTRIL [Suspect]
     Active Substance: CLONAZEPAM
     Indication: MATERNAL EXPOSURE TIMING UNSPECIFIED
     Route: 064
  2. DEPAKINE CHRONO [Suspect]
     Active Substance: VALPROATE SODIUM
     Indication: MATERNAL EXPOSURE TIMING UNSPECIFIED
     Route: 064
  3. LAMICTAL [Suspect]
     Active Substance: LAMOTRIGINE
     Indication: MATERNAL EXPOSURE TIMING UNSPECIFIED
     Route: 064

REACTIONS (18)
  - Foetal anticonvulsant syndrome [Unknown]
  - Epiphyses premature fusion [Unknown]
  - Learning disorder [Unknown]
  - Ear infection [Unknown]
  - Oesophageal disorder [Unknown]
  - Speech disorder developmental [Unknown]
  - Drug withdrawal syndrome [Unknown]
  - Cognitive linguistic deficit [Unknown]
  - Conjunctivitis [Unknown]
  - Hirsutism [Recovering/Resolving]
  - Weaning failure [Recovered/Resolved]
  - Precocious puberty [Recovering/Resolving]
  - Cognitive disorder [Unknown]
  - Enlarged clitoris [Unknown]
  - Developmental delay [Unknown]
  - Foetal exposure during pregnancy [Unknown]
  - Abnormal behaviour [Unknown]
  - Constipation [Unknown]

NARRATIVE: CASE EVENT DATE: 200601
